FAERS Safety Report 7544142-0 (Version None)
Quarter: 2011Q2

REPORT INFORMATION
  Report Type: 
  Country: None (occurrence: None)
  Receive Date: 20110613
  Receipt Date: 20060614
  Transmission Date: 20111010
  Serious: Yes (Other)
  Sender: FDA-Public Use
  Company Number: PHHO2005CA16302

PATIENT
  Sex: Female

DRUGS (7)
  1. XELODA [Concomitant]
  2. ZOMETA [Suspect]
     Indication: BREAST CANCER
     Dosage: 4 MG ONCE MONTHLY
     Route: 042
     Dates: start: 20050821
  3. HYDROMORPHONE HCL [Concomitant]
  4. ANALGESICS [Concomitant]
  5. PAMIDRONATE DISODIUM [Concomitant]
  6. CALCIUM CARBONATE [Concomitant]
  7. VITAMIN D [Concomitant]

REACTIONS (3)
  - MASTICATION DISORDER [None]
  - METASTASES TO BONE [None]
  - METASTASES TO CENTRAL NERVOUS SYSTEM [None]
